FAERS Safety Report 7535207-8 (Version None)
Quarter: 2011Q2

REPORT INFORMATION
  Report Type: 
  Country: None (occurrence: None)
  Receive Date: 20110609
  Receipt Date: 20110601
  Transmission Date: 20111010
  Serious: Yes (Death)
  Sender: FDA-Public Use
  Company Number: JP-AMGEN-JPNSP2011028364

PATIENT
  Age: 75 Year
  Sex: Male

DRUGS (2)
  1. PREDNISOLONE [Concomitant]
     Dosage: 5 MG/DAY
     Route: 048
  2. ENBREL [Suspect]
     Indication: RHEUMATOID ARTHRITIS
     Dosage: UNK

REACTIONS (3)
  - PERITONITIS [None]
  - ANASTOMOTIC COMPLICATION [None]
  - IMPAIRED HEALING [None]
